FAERS Safety Report 8604641-7 (Version None)
Quarter: 2012Q3

REPORT INFORMATION
  Report Type: 
  Country: None (occurrence: None)
  Receive Date: 20120820
  Receipt Date: 20120810
  Transmission Date: 20120928
  Serious: Yes (Other)
  Sender: FDA-Public Use
  Company Number: PHEH2012US016145

PATIENT
  Sex: Male

DRUGS (16)
  1. PREDNISOLONE [Concomitant]
  2. ACETAMINOPHEN [Concomitant]
  3. MEDROL [Concomitant]
  4. ZOMETA [Suspect]
     Indication: MULTIPLE MYELOMA
     Dosage: 4 MG, UNK
     Route: 042
     Dates: start: 20060101, end: 20101226
  5. RANITIDINE [Concomitant]
  6. LOMOTIL [Concomitant]
  7. ATIVAN [Concomitant]
  8. LISINOPRIL [Concomitant]
  9. FLAGYL [Concomitant]
  10. ZEGERID [Concomitant]
  11. HYDROCODONE [Concomitant]
  12. DEXAMETHASONE [Concomitant]
  13. GRANISETRON HYDROCHLORIDE [Concomitant]
  14. LYRICA [Concomitant]
  15. TAMIFLU [Concomitant]
  16. DIPHENHYDRAMINE HYDROCHLORIDE [Concomitant]

REACTIONS (35)
  - OSTEONECROSIS OF JAW [None]
  - COMPRESSION FRACTURE [None]
  - OSTEOARTHRITIS [None]
  - JOINT SWELLING [None]
  - CANDIDIASIS [None]
  - SWELLING [None]
  - BRONCHITIS [None]
  - PERIODONTAL DISEASE [None]
  - INTERVERTEBRAL DISC PROTRUSION [None]
  - RIB FRACTURE [None]
  - URINARY TRACT INFECTION [None]
  - FATIGUE [None]
  - PAIN IN JAW [None]
  - INFECTION [None]
  - OEDEMA MOUTH [None]
  - GINGIVAL PAIN [None]
  - BACK PAIN [None]
  - ARTHRALGIA [None]
  - HYPOAESTHESIA [None]
  - DIARRHOEA [None]
  - OEDEMA PERIPHERAL [None]
  - BONE PAIN [None]
  - MUSCLE SPASMS [None]
  - PYREXIA [None]
  - DISCOMFORT [None]
  - PRIMARY SEQUESTRUM [None]
  - SINUS CONGESTION [None]
  - DEPRESSION [None]
  - TOOTHACHE [None]
  - SWELLING FACE [None]
  - EXPOSED BONE IN JAW [None]
  - HYPOGAMMAGLOBULINAEMIA [None]
  - THROMBOCYTOPENIA [None]
  - BONE LESION [None]
  - OSTEOMYELITIS [None]
